FAERS Safety Report 9395580 (Version 1)
Quarter: 2013Q3

REPORT INFORMATION
  Report Type: Spontaneous
  Country: BE (occurrence: ES)
  Receive Date: 20130711
  Receipt Date: 20130711
  Transmission Date: 20140515
  Serious: Yes (Hospitalization)
  Sender: FDA-Public Use
  Company Number: BE-ABBOTT-12P-013-1019791-00

PATIENT
  Age: 60 Year
  Sex: Male
  Weight: 107 kg

DRUGS (1)
  1. HUMIRA [Suspect]
     Indication: CROHN^S DISEASE
     Route: 058
     Dates: start: 201011

REACTIONS (4)
  - Purpura [Recovered/Resolved]
  - Oedema peripheral [Recovered/Resolved]
  - Skin reaction [Recovered/Resolved]
  - Vasculitis [Recovered/Resolved]
